FAERS Safety Report 4931630-6 (Version None)
Quarter: 2006Q1

REPORT INFORMATION
  Report Type: 
  Country: None (occurrence: None)
  Receive Date: 20060303
  Receipt Date: 20051021
  Transmission Date: 20060701
  Serious: No
  Sender: FDA-Public Use
  Company Number: US-BRISTOL-MYERS SQUIBB COMPANY-13154232

PATIENT
  Age: 26 Year
  Sex: Female

DRUGS (7)
  1. ERBITUX [Suspect]
     Indication: COLON CANCER METASTATIC
     Route: 042
     Dates: start: 20050901, end: 20050901
  2. IRINOTECAN HCL [Concomitant]
  3. LEUCOVORIN CALCIUM [Concomitant]
  4. FLUOROURACIL [Concomitant]
  5. ALOXI [Concomitant]
  6. DECADRON SRC [Concomitant]
  7. ATROPINE [Concomitant]

REACTIONS (1)
  - RASH PUSTULAR [None]
